FAERS Safety Report 9779093 (Version 2)
Quarter: 2013Q4

REPORT INFORMATION
  Report Type: Spontaneous
  Country: CA (occurrence: CA)
  Receive Date: 20131223
  Receipt Date: 20131223
  Transmission Date: 20140711
  Serious: Yes (Other)
  Sender: FDA-Public Use
  Company Number: CA-ELI_LILLY_AND_COMPANY-CA201210002036

PATIENT
  Age: 13 Year
  Sex: Male
  Weight: 75 kg

DRUGS (5)
  1. STRATTERA [Suspect]
     Indication: PRODUCT USED FOR UNKNOWN INDICATION
     Dosage: 10 MG, QD
     Route: 065
     Dates: start: 20120313, end: 20120319
  2. STRATTERA [Suspect]
     Dosage: 18 MG, QD
     Route: 065
     Dates: start: 20120320, end: 20120326
  3. STRATTERA [Suspect]
     Dosage: 25 MG, QD
     Route: 065
     Dates: start: 20120327, end: 20120416
  4. STRATTERA [Suspect]
     Dosage: 18 MG, QD
     Route: 065
     Dates: start: 20120417
  5. LORATADINE [Concomitant]
     Indication: SEASONAL ALLERGY
     Dosage: 10 MG, QD
     Route: 065

REACTIONS (2)
  - Delusion [Recovered/Resolved]
  - Paranoia [Recovered/Resolved]
